FAERS Safety Report 13726979 (Version 3)
Quarter: 2018Q1

REPORT INFORMATION
  Report Type: Spontaneous
  Country: US (occurrence: US)
  Receive Date: 20170706
  Receipt Date: 20180314
  Transmission Date: 20180508
  Serious: No
  Sender: FDA-Public Use
  Company Number: US-PFIZER INC-2017291580

PATIENT
  Age: 71 Year
  Sex: Female
  Weight: 104.3 kg

DRUGS (3)
  1. SOMAVERT [Suspect]
     Active Substance: PEGVISOMANT
     Indication: ACROMEGALY
     Dosage: 20 MG, DAILY
     Route: 058
  2. LANTUS [Concomitant]
     Active Substance: INSULIN GLARGINE
     Indication: DIABETES MELLITUS
     Dosage: 40 IU, 2X/DAY
  3. NOVOLOG [Concomitant]
     Active Substance: INSULIN ASPART
     Indication: DIABETES MELLITUS
     Dosage: 20 IU, 3X/DAY

REACTIONS (6)
  - Muscle spasms [Unknown]
  - Headache [Unknown]
  - Injection site induration [Unknown]
  - Dizziness [Unknown]
  - Disease recurrence [Unknown]
  - Fatigue [Unknown]
